FAERS Safety Report 4534083-5 (Version None)
Quarter: 2004Q4

REPORT INFORMATION
  Report Type: 
  Country: None (occurrence: None)
  Receive Date: 20041222
  Receipt Date: 20041210
  Transmission Date: 20050328
  Serious: Yes (Death, Hospitalization)
  Sender: FDA-Public Use
  Company Number: FR-JNJFOC-20041203231

PATIENT
  Age: 13 Year
  Sex: Female
  Weight: 30 kg

DRUGS (4)
  1. REMICADE [Suspect]
     Route: 042
  2. REMICADE [Suspect]
     Route: 042
  3. PREDNISONE TAB [Concomitant]
     Route: 042
  4. METHOTREXATE [Concomitant]
     Route: 042

REACTIONS (2)
  - ASPERGILLOSIS [None]
  - INFECTION PARASITIC [None]
